FAERS Safety Report 18880177 (Version 3)
Quarter: 2021Q1

REPORT INFORMATION
  Report Type: Spontaneous
  Country: US (occurrence: US)
  Receive Date: 20210211
  Receipt Date: 20210331
  Transmission Date: 20210420
  Serious: Yes (Other)
  Sender: FDA-Public Use
  Company Number: US-GLAXOSMITHKLINE-US2021GSK037477

PATIENT
  Sex: Male

DRUGS (4)
  1. ZANTAC [Suspect]
     Active Substance: RANITIDINE HYDROCHLORIDE
     Indication: HYPERSENSITIVITY
     Dosage: 150 MG, QD
     Route: 065
     Dates: start: 200701, end: 201911
  2. ZANTAC [Suspect]
     Active Substance: RANITIDINE HYDROCHLORIDE
     Indication: HYPERSENSITIVITY
     Dosage: 150 MG, QD
     Route: 065
     Dates: start: 200701, end: 201911
  3. RANITIDINE. [Suspect]
     Active Substance: RANITIDINE
     Indication: HYPERSENSITIVITY
     Dosage: 150 MG, QD
     Route: 065
     Dates: start: 200701, end: 201911
  4. RANITIDINE. [Suspect]
     Active Substance: RANITIDINE
     Indication: HYPERSENSITIVITY
     Dosage: 150 MG, QD
     Route: 065
     Dates: start: 200701, end: 201911

REACTIONS (1)
  - Colorectal cancer [Unknown]
